FAERS Safety Report 16292339 (Version 1)
Quarter: 2019Q2

REPORT INFORMATION
  Report Type: Spontaneous
  Country: US (occurrence: US)
  Receive Date: 20190509
  Receipt Date: 20190509
  Transmission Date: 20190711
  Serious: No
  Sender: FDA-Public Use
  Company Number: US-JNJFOC-20190431060

PATIENT
  Age: 34 Year
  Sex: Male
  Weight: 113 kg

DRUGS (4)
  1. LORATADINE. [Concomitant]
     Active Substance: LORATADINE
     Indication: PREMEDICATION
     Route: 048
  2. REMICADE [Suspect]
     Active Substance: INFLIXIMAB
     Indication: CROHN^S DISEASE
     Route: 042
  3. ACETAMINOPHEN. [Concomitant]
     Active Substance: ACETAMINOPHEN
     Indication: PREMEDICATION
     Route: 048
  4. LORAZEPAM. [Concomitant]
     Active Substance: LORAZEPAM
     Indication: PREMEDICATION
     Route: 048

REACTIONS (1)
  - Intercepted product administration error [Unknown]

NARRATIVE: CASE EVENT DATE: 20190417
